FAERS Safety Report 20026487 (Version 1)
Quarter: 2021Q4

REPORT INFORMATION
  Report Type: Spontaneous
  Country: DE (occurrence: None)
  Receive Date: 20211102
  Receipt Date: 20211102
  Transmission Date: 20220303
  Serious: Yes (Hospitalization)
  Sender: FDA-Public Use
  Company Number: DE-IPSEN Group, Research and Development-2021-25856

PATIENT
  Sex: Male

DRUGS (13)
  1. NUTROPIN AQ [Suspect]
     Active Substance: SOMATROPIN
     Indication: Pituitary gland operation
     Dosage: PATIENT STATED THAT HE DIALED TO 2
     Route: 058
     Dates: start: 2002
  2. NUTROPIN AQ [Suspect]
     Active Substance: SOMATROPIN
     Indication: Growth hormone deficiency
  3. ALFUZOSIN [Concomitant]
     Active Substance: ALFUZOSIN
  4. CLOPIDOGREL [Concomitant]
     Active Substance: CLOPIDOGREL BISULFATE
  5. LEVOTHYROXINE [Concomitant]
     Active Substance: LEVOTHYROXINE
  6. PANTOPRAZOLE [Concomitant]
     Active Substance: PANTOPRAZOLE
  7. RAMIPRIL [Concomitant]
     Active Substance: RAMIPRIL
  8. CARBAMAZEPINE [Concomitant]
     Active Substance: CARBAMAZEPINE
  9. TORSEMIDE [Concomitant]
     Active Substance: TORSEMIDE
  10. XARELTO [Concomitant]
     Active Substance: RIVAROXABAN
  11. SPIRIVA [Concomitant]
     Active Substance: TIOTROPIUM BROMIDE MONOHYDRATE
  12. TESTOSTERONE [Concomitant]
     Active Substance: TESTOSTERONE
  13. FLUDROCORTISONE [Concomitant]
     Active Substance: FLUDROCORTISONE

REACTIONS (3)
  - Malaise [Unknown]
  - Headache [Unknown]
  - Device information output issue [Unknown]
